FAERS Safety Report 17760476 (Version 1)
Quarter: 2020Q2

REPORT INFORMATION
  Report Type: Report from Study
  Country: US (occurrence: US)
  Receive Date: 20200508
  Receipt Date: 20200508
  Transmission Date: 20200714
  Serious: Yes (Other)
  Sender: FDA-Public Use
  Company Number: US-PFIZER INC-2020179942

PATIENT
  Age: 41 Year
  Sex: Female

DRUGS (6)
  1. LIDOCAINE. [Concomitant]
     Active Substance: LIDOCAINE
     Indication: ANAESTHESIA
     Dosage: 20 CC
  2. FENTANYL CITRATE. [Suspect]
     Active Substance: FENTANYL CITRATE
     Indication: SEDATION
     Dosage: UNK (50-150 MCG WAS GIVEN IN 50 MCG DIVIDED DOSES)
  3. OXYGEN. [Concomitant]
     Active Substance: OXYGEN
     Dosage: UNK
  4. BREVITAL SODIUM [Suspect]
     Active Substance: METHOHEXITAL SODIUM
     Indication: SEDATION
     Dosage: UNK
  5. MIDAZOLAM. [Suspect]
     Active Substance: MIDAZOLAM
     Indication: SEDATION
     Dosage: UNK (2-3 MG)
  6. VASOPRESSIN. [Concomitant]
     Active Substance: VASOPRESSIN
     Dosage: 5U

REACTIONS (5)
  - Bradycardia [Recovered/Resolved]
  - Disseminated intravascular coagulation [Unknown]
  - Oxygen saturation decreased [Unknown]
  - Ventricular extrasystoles [Unknown]
  - Hypotension [Recovered/Resolved]
